FAERS Safety Report 8871686 (Version 8)
Quarter: 2014Q3

REPORT INFORMATION
  Report Type: Spontaneous
  Country: US (occurrence: US)
  Receive Date: 20121030
  Receipt Date: 20140829
  Transmission Date: 20150326
  Serious: Yes (Hospitalization, Disabling, Other)
  Sender: FDA-Public Use
  Company Number: US-009507513-1210USA007623

PATIENT
  Sex: Female
  Weight: 54.88 kg

DRUGS (5)
  1. FOSAMAX [Suspect]
     Active Substance: ALENDRONATE SODIUM
     Indication: OSTEOPENIA
     Dosage: 10 MG, QD
     Route: 048
     Dates: start: 20000728
  2. FOSAMAX [Suspect]
     Active Substance: ALENDRONATE SODIUM
     Dosage: 70 MG, QW
     Route: 048
     Dates: start: 20010517
  3. FOSAMAX [Suspect]
     Active Substance: ALENDRONATE SODIUM
     Indication: OSTEOPOROSIS
     Dosage: 70 MG, MONTHLY
     Route: 048
     Dates: start: 2001, end: 201211
  4. PREMARIN [Concomitant]
     Active Substance: ESTROGENS, CONJUGATED
     Dosage: UNK
  5. ALENDRONATE SODIUM. [Suspect]
     Active Substance: ALENDRONATE SODIUM
     Indication: OSTEOPOROSIS
     Dosage: 70 MG, QM
     Route: 048
     Dates: start: 20080314, end: 20121101

REACTIONS (45)
  - Stress fracture [Not Recovered/Not Resolved]
  - Renal failure chronic [Not Recovered/Not Resolved]
  - Femur fracture [Recovering/Resolving]
  - Periodontal operation [Unknown]
  - Hypertension [Unknown]
  - Gastric disorder [Unknown]
  - Bone disorder [Unknown]
  - Hyponatraemia [Unknown]
  - Hypercholesterolaemia [Unknown]
  - Fractured ischium [Recovered/Resolved]
  - Diverticulum intestinal [Unknown]
  - Foot fracture [Unknown]
  - Hypothyroidism [Unknown]
  - Pain [Not Recovered/Not Resolved]
  - Muscle spasms [Unknown]
  - Femur fracture [Unknown]
  - Intramedullary rod insertion [Unknown]
  - Low turnover osteopathy [Not Recovered/Not Resolved]
  - Knee operation [Unknown]
  - Paraesthesia oral [Unknown]
  - Nephrectomy [Unknown]
  - Fracture [Unknown]
  - Stress urinary incontinence [Unknown]
  - Pulmonary hypertension [Unknown]
  - Premature menopause [Unknown]
  - Hysterectomy [Unknown]
  - Sacroiliitis [Unknown]
  - Enostosis [Unknown]
  - Depression [Unknown]
  - Restless legs syndrome [Unknown]
  - Hypocalcaemia [Unknown]
  - Joint effusion [Unknown]
  - Fatigue [Unknown]
  - Overdose [Unknown]
  - Insomnia [Unknown]
  - Adrenal insufficiency [Unknown]
  - Musculoskeletal pain [Unknown]
  - Intramedullary rod insertion [Unknown]
  - Inappropriate schedule of drug administration [Unknown]
  - Osteoarthritis [Unknown]
  - Gastrooesophageal reflux disease [Unknown]
  - Femur fracture [Unknown]
  - Osteoporosis [Not Recovered/Not Resolved]
  - Femur fracture [Not Recovered/Not Resolved]
  - Bone lesion [Unknown]

NARRATIVE: CASE EVENT DATE: 2001
